FAERS Safety Report 9440760 (Version 7)
Quarter: 2016Q2

REPORT INFORMATION
  Report Type: Spontaneous
  Country: JP (occurrence: JP)
  Receive Date: 20130805
  Receipt Date: 20160602
  Transmission Date: 20160815
  Serious: Yes (Hospitalization)
  Sender: FDA-Public Use
  Company Number: JP-JNJFOC-20130800145

PATIENT
  Age: 63 Year
  Sex: Male
  Weight: 57 kg

DRUGS (8)
  1. NEORAL [Concomitant]
     Active Substance: CYCLOSPORINE
     Indication: PSORIASIS
     Route: 048
     Dates: end: 20130715
  2. ADALIMUMAB [Suspect]
     Active Substance: ADALIMUMAB
     Indication: PSORIATIC ARTHROPATHY
     Route: 065
     Dates: start: 201402
  3. REMICADE [Suspect]
     Active Substance: INFLIXIMAB
     Indication: PSORIASIS
     Route: 042
     Dates: start: 20130716, end: 20130716
  4. ADALIMUMAB [Suspect]
     Active Substance: ADALIMUMAB
     Indication: ARTHRALGIA
     Route: 065
     Dates: start: 201307
  5. NEORAL [Concomitant]
     Active Substance: CYCLOSPORINE
     Indication: PSORIASIS
     Route: 048
     Dates: start: 2011
  6. ADALIMUMAB [Suspect]
     Active Substance: ADALIMUMAB
     Indication: ARTHRALGIA
     Route: 065
     Dates: start: 201402
  7. ADALIMUMAB [Suspect]
     Active Substance: ADALIMUMAB
     Indication: PSORIATIC ARTHROPATHY
     Route: 065
     Dates: start: 201307
  8. REMICADE [Suspect]
     Active Substance: INFLIXIMAB
     Indication: PSORIATIC ARTHROPATHY
     Route: 042
     Dates: start: 20130716, end: 20130716

REACTIONS (4)
  - Psoriatic arthropathy [Unknown]
  - Eosinophilic pneumonia [Recovered/Resolved]
  - Staphylococcal infection [Unknown]
  - Pustular psoriasis [Unknown]

NARRATIVE: CASE EVENT DATE: 20130719
